FAERS Safety Report 10851279 (Version 1)
Quarter: 2015Q1

REPORT INFORMATION
  Report Type: Spontaneous
  Country: US (occurrence: US)
  Receive Date: 20150222
  Receipt Date: 20150222
  Transmission Date: 20150721
  Serious: No
  Sender: FDA-Public Use
  Company Number: US-ALLERGAN-1407514US

PATIENT
  Age: 7 Decade
  Sex: Female

DRUGS (6)
  1. FOSEMAX [Concomitant]
  2. BOTOX COSMETIC [Suspect]
     Active Substance: ONABOTULINUMTOXINA
     Indication: SKIN WRINKLING
     Dosage: 15 UNITS, SINGLE
     Route: 030
     Dates: start: 20140310, end: 20140310
  3. VITAMINS                           /00067501/ [Concomitant]
     Active Substance: VITAMINS
  4. BOTOX COSMETIC [Suspect]
     Active Substance: ONABOTULINUMTOXINA
     Indication: SKIN WRINKLING
     Dosage: 20 UNK, UNK
     Route: 030
     Dates: start: 20140310, end: 20140310
  5. ZETIA [Concomitant]
     Active Substance: EZETIMIBE
  6. EVISTA [Concomitant]
     Active Substance: RALOXIFENE HYDROCHLORIDE

REACTIONS (2)
  - Dizziness [Recovered/Resolved]
  - Temporomandibular joint syndrome [Not Recovered/Not Resolved]

NARRATIVE: CASE EVENT DATE: 20140314
